FAERS Safety Report 23424544 (Version 2)
Quarter: 2024Q1

REPORT INFORMATION
  Report Type: Spontaneous
  Country: US (occurrence: US)
  Receive Date: 20240120
  Receipt Date: 20240127
  Transmission Date: 20240410
  Serious: Yes (Hospitalization)
  Sender: FDA-Public Use
  Company Number: US-JNJFOC-20240142885

PATIENT
  Age: 44 Year
  Sex: Female
  Weight: 132 kg

DRUGS (1)
  1. VELETRI [Suspect]
     Active Substance: EPOPROSTENOL
     Indication: Product used for unknown indication
     Dosage: TITRATED BY 1 NG/KG/MIN BY EVERY 3-4 DAYS UNTIL GOAL OF 50 NG/KG/MIN?CURRENT TITRATED DOSE: 6 NG/KG/
     Route: 042

REACTIONS (1)
  - Hospitalisation [Unknown]

NARRATIVE: CASE EVENT DATE: 20240115
